FAERS Safety Report 7600767-5 (Version None)
Quarter: 2011Q3

REPORT INFORMATION
  Report Type: 
  Country: None (occurrence: None)
  Receive Date: 20110711
  Receipt Date: 20110630
  Transmission Date: 20111222
  Serious: Yes (Life-Threatening, Hospitalization, Other)
  Sender: FDA-Public Use
  Company Number: JP-CELGENEUS-087-21880-10102310

PATIENT
  Sex: Male

DRUGS (21)
  1. REVLIMID [Suspect]
     Indication: MULTIPLE MYELOMA
     Dosage: 25 MILLIGRAM
     Route: 048
     Dates: start: 20101008, end: 20101028
  2. DEXAMETHASONE [Suspect]
     Indication: MULTIPLE MYELOMA
     Dosage: 4 MILLIGRAM
     Route: 048
     Dates: start: 20101008, end: 20101011
  3. ZOLPIDEM [Concomitant]
     Dosage: 5 MILLIGRAM
     Route: 048
  4. DECADRON [Concomitant]
     Indication: MULTIPLE MYELOMA
     Dosage: 2 MILLIGRAM
     Route: 048
     Dates: start: 20101022, end: 20101028
  5. ASPIRIN [Concomitant]
     Indication: PROPHYLAXIS
     Dosage: 100 MILLIGRAM
     Route: 048
     Dates: start: 20101008
  6. DEXAMETHASONE [Suspect]
     Dosage: 4 MILLIGRAM
     Route: 048
     Dates: start: 20101015, end: 20101021
  7. DEXAMETHASONE [Suspect]
     Dosage: 4 MILLIGRAM
     Route: 048
     Dates: start: 20101112, end: 20101125
  8. REVLIMID [Suspect]
     Dosage: 25 MILLIGRAM
     Route: 048
     Dates: start: 20101105, end: 20101125
  9. REVLIMID [Suspect]
     Dosage: 25 MILLIGRAM
     Route: 048
     Dates: start: 20101203, end: 20101211
  10. REVLIMID [Suspect]
     Dosage: 25 MILLIGRAM
     Route: 048
     Dates: start: 20110119, end: 20110208
  11. REVLIMID [Suspect]
     Dosage: 25 MILLIGRAM
     Route: 048
     Dates: start: 20110424, end: 20110508
  12. DECADRON [Concomitant]
     Dosage: 6 MILLIGRAM
     Route: 048
     Dates: start: 20101126, end: 20101211
  13. REVLIMID [Suspect]
     Dosage: 25 MILLIGRAM
     Route: 048
     Dates: start: 20110313, end: 20110404
  14. REVLIMID [Suspect]
     Dosage: 15 MILLIGRAM
     Route: 048
     Dates: start: 20110508, end: 20110514
  15. DECADRON [Concomitant]
     Dosage: 1 MILLIGRAM
     Route: 048
     Dates: start: 20101105, end: 20101111
  16. DECADRON [Concomitant]
     Dosage: 2 MILLIGRAM
     Route: 048
     Dates: start: 20110124, end: 20110125
  17. OMEPRAZOLE [Concomitant]
     Indication: PROPHYLAXIS
     Dosage: 10 MILLIGRAM
     Route: 048
     Dates: start: 20101008
  18. LEVOFLOXACIN [Concomitant]
     Dosage: 500 MILLIGRAM
     Route: 048
     Dates: start: 20101021, end: 20101027
  19. PREDNISOLONE [Concomitant]
     Indication: MULTIPLE MYELOMA
     Dosage: 5 MILLIGRAM
     Route: 048
     Dates: start: 20110126, end: 20110127
  20. PREDNISOLONE [Concomitant]
     Dosage: 2.5 MILLIGRAM
     Route: 048
     Dates: start: 20110128, end: 20110129
  21. DEXAMETHASONE [Suspect]
     Dosage: 4 MILLIGRAM
     Route: 048
     Dates: start: 20110119, end: 20110123

REACTIONS (5)
  - DIABETES MELLITUS [None]
  - NEUROPATHY PERIPHERAL [None]
  - LYMPHADENOPATHY [None]
  - RASH [None]
  - PLATELET COUNT DECREASED [None]
